FAERS Safety Report 21871577 (Version 1)
Quarter: 2023Q1

REPORT INFORMATION
  Report Type: Report from Study
  Country: US (occurrence: US)
  Receive Date: 20230117
  Receipt Date: 20230117
  Transmission Date: 20230418
  Serious: No
  Sender: FDA-Public Use
  Company Number: US-ABBVIE-4240483

PATIENT
  Age: 44 Year
  Sex: Male

DRUGS (7)
  1. HUMIRA [Suspect]
     Active Substance: ADALIMUMAB
     Indication: Psoriasis
     Dosage: FORM STRENGTH: 80 MILLIGRAM? FREQUENCY TEXT: DAY 1
     Route: 058
     Dates: start: 202210
  2. HUMIRA [Suspect]
     Active Substance: ADALIMUMAB
  3. AMOXICILLIN [Concomitant]
     Active Substance: AMOXICILLIN
     Indication: Product used for unknown indication
  4. IBUPROFEN [Concomitant]
     Active Substance: IBUPROFEN
     Indication: Product used for unknown indication
  5. CLOBETASOL 17 PROPIONATE [Concomitant]
     Indication: Product used for unknown indication
  6. PROTEIN FORTIFIER [Concomitant]
     Indication: Product used for unknown indication
  7. TRIAMCINOLONE [Concomitant]
     Active Substance: TRIAMCINOLONE
     Indication: Product used for unknown indication

REACTIONS (1)
  - Tooth extraction [Unknown]

NARRATIVE: CASE EVENT DATE: 20221213
